FAERS Safety Report 21649729 (Version 2)
Quarter: 2022Q4

REPORT INFORMATION
  Report Type: Spontaneous
  Country: NL (occurrence: NL)
  Receive Date: 20221128
  Receipt Date: 20221215
  Transmission Date: 20230112
  Serious: Yes (Hospitalization)
  Sender: FDA-Public Use
  Company Number: NL-TEVA-2022-NL-2829071

PATIENT
  Age: 55 Year
  Sex: Male

DRUGS (3)
  1. PREDNISONE [Suspect]
     Active Substance: PREDNISONE
     Indication: Guillain-Barre syndrome
     Route: 065
  2. PEMBROLIZUMAB [Suspect]
     Active Substance: PEMBROLIZUMAB
     Indication: Malignant melanoma
     Dosage: .1429 MG/KG DAILY;
     Route: 065
  3. Immunoglobulin [Concomitant]
     Indication: Guillain-Barre syndrome
     Dosage: .4 GRAM DAILY;
     Route: 042

REACTIONS (2)
  - Guillain-Barre syndrome [Recovering/Resolving]
  - Drug ineffective [Unknown]
